FAERS Safety Report 21701642 (Version 1)
Quarter: 2022Q4

REPORT INFORMATION
  Report Type: Spontaneous
  Country: US (occurrence: None)
  Receive Date: 20221208
  Receipt Date: 20221208
  Transmission Date: 20230113
  Serious: Yes (Other)
  Sender: FDA-Public Use
  Company Number: None

PATIENT
  Sex: Female

DRUGS (1)
  1. BUPIVACAINE SPINAL [Suspect]
     Active Substance: BUPIVACAINE HYDROCHLORIDE
     Dosage: OTHER ROUTE : SPINAL;?
     Route: 024

REACTIONS (4)
  - Drug ineffective [None]
  - Anaesthetic complication [None]
  - Treatment failure [None]
  - Product quality issue [None]
